FAERS Safety Report 4325339-X (Version None)
Quarter: 2004Q1

REPORT INFORMATION
  Report Type: 
  Country: None (occurrence: None)
  Receive Date: 20040329
  Receipt Date: 20040319
  Transmission Date: 20041129
  Serious: Yes (Death, Hospitalization)
  Sender: FDA-Public Use
  Company Number: 200413309GDDC

PATIENT
  Age: 59 Year
  Sex: Female

DRUGS (5)
  1. TAXOTERE [Suspect]
     Indication: BREAST CANCER METASTATIC
     Route: 042
     Dates: start: 20031229, end: 20040301
  2. NAVELBINE [Suspect]
     Indication: BREAST CANCER METASTATIC
     Route: 048
     Dates: start: 20031229, end: 20040301
  3. GLICLAZIDE [Concomitant]
     Indication: HYPERGLYCAEMIA
  4. OMEPRAZOLE [Concomitant]
  5. HYDROXYZINE [Concomitant]
     Indication: ANXIETY

REACTIONS (9)
  - ANXIETY [None]
  - CHEST PAIN [None]
  - DEHYDRATION [None]
  - DIARRHOEA [None]
  - GASTRITIS [None]
  - HYPERGLYCAEMIA [None]
  - HYPOVOLAEMIC SHOCK [None]
  - PERFORMANCE STATUS DECREASED [None]
  - VOMITING [None]
